FAERS Safety Report 8956972 (Version 2)
Quarter: 2013Q1

REPORT INFORMATION
  Report Type: Spontaneous
  Country: US (occurrence: US)
  Receive Date: 20121211
  Receipt Date: 20130128
  Transmission Date: 20140127
  Serious: Yes (Death)
  Sender: FDA-Public Use
  Company Number: US-PFIZER INC-2012307632

PATIENT
  Age: 65 Year
  Sex: Male

DRUGS (1)
  1. XALKORI [Suspect]
     Indication: NON-SMALL CELL LUNG CANCER
     Dosage: 250 MG, 2X/DAY
     Route: 048

REACTIONS (4)
  - Disease progression [Fatal]
  - Non-small cell lung cancer [Fatal]
  - Diarrhoea [Unknown]
  - Fatigue [Recovered/Resolved]
